FAERS Safety Report 8014484-3 (Version None)
Quarter: 2011Q4

REPORT INFORMATION
  Report Type: 
  Country: None (occurrence: None)
  Receive Date: 20111229
  Receipt Date: 20111219
  Transmission Date: 20120403
  Serious: Yes (Hospitalization, Other)
  Sender: FDA-Public Use
  Company Number: US-PFIZER INC-2011314110

PATIENT
  Age: 34 Year
  Sex: Female

DRUGS (2)
  1. CEFTRIAXONE SODIUM [Suspect]
     Indication: INFECTION PROPHYLAXIS
     Route: 042
  2. VANCOMYCIN HCL [Suspect]
     Indication: INFECTION PROPHYLAXIS
     Route: 042

REACTIONS (3)
  - DRUG RASH WITH EOSINOPHILIA AND SYSTEMIC SYMPTOMS [None]
  - CYTOMEGALOVIRUS OESOPHAGITIS [None]
  - CYTOMEGALOVIRUS DUODENITIS [None]
